FAERS Safety Report 10149638 (Version 2)
Quarter: 2014Q2

REPORT INFORMATION
  Report Type: Report from Study
  Country: US (occurrence: US)
  Receive Date: 20140502
  Receipt Date: 20140513
  Transmission Date: 20141212
  Serious: No
  Sender: FDA-Public Use
  Company Number: PHEH2014US008524

PATIENT
  Sex: Male

DRUGS (11)
  1. TASIGNA [Suspect]
     Indication: CHRONIC MYELOID LEUKAEMIA
     Dosage: 300 MG, BID
     Route: 048
  2. TASIGNA [Suspect]
     Dosage: 300 MG, BID
     Route: 048
     Dates: start: 20140321
  3. ANUSOL-HC//HYDROCORTISONE ACETATE [Concomitant]
     Dosage: UNK UKN, UNK
  4. AYR SALINE [Concomitant]
     Dosage: UNK UKN, UNK
  5. FLONASE [Concomitant]
     Dosage: UNK UKN, UNK
  6. COMPAZINE [Concomitant]
     Dosage: UNK UKN, UNK
  7. OMEPRAZOLE [Concomitant]
     Dosage: UNK UKN, UNK
  8. CYCLOBENZAPRINE [Concomitant]
     Dosage: UNK UKN, UNK
  9. VIT D [Concomitant]
     Dosage: UNK UKN, UNK
  10. VICODIN [Concomitant]
     Dosage: UNK UKN, UNK
  11. CLINDAMYCIN [Concomitant]
     Dosage: UNK UKN, UNK
     Route: 061

REACTIONS (2)
  - Nausea [Unknown]
  - Rash [Unknown]
